FAERS Safety Report 10958698 (Version 2)
Quarter: 2015Q2

REPORT INFORMATION
  Report Type: Other
  Country: DE (occurrence: DE)
  Receive Date: 20150326
  Receipt Date: 20150415
  Transmission Date: 20150821
  Serious: Yes (Hospitalization)
  Sender: FDA-Public Use
  Company Number: DE-SPECTRUM PHARMACEUTICALS, INC.-15-M-DE-00127

PATIENT
  Sex: Female

DRUGS (11)
  1. PEGFILGRASTIM [Concomitant]
     Active Substance: PEGFILGRASTIM
     Indication: NON-HODGKIN^S LYMPHOMA
     Dosage: 6 MG, QOW Q2W
     Route: 058
  2. PANTOPRAZOLE SODIUM. [Concomitant]
     Active Substance: PANTOPRAZOLE SODIUM
     Indication: PROPHYLAXIS
     Dosage: 40 MG, QD
     Route: 048
     Dates: start: 20150117
  3. CYCLOPHOSPHAMIDE. [Suspect]
     Active Substance: CYCLOPHOSPHAMIDE
     Indication: NON-HODGKIN^S LYMPHOMA
     Dosage: 1340 MG, QOW Q2W
     Route: 042
  4. RITUXIMAB [Concomitant]
     Active Substance: RITUXIMAB
     Indication: NON-HODGKIN^S LYMPHOMA
     Dosage: 670 MG, Q2
     Route: 042
  5. COTRIM FORTE EU RHO [Concomitant]
     Indication: PROPHYLAXIS
     Dosage: 960 MG, BID MONDAY TUESDAY
     Route: 048
     Dates: start: 20150211
  6. AMPHOTERICIN B. [Concomitant]
     Active Substance: AMPHOTERICIN B
     Indication: PROPHYLAXIS
     Dosage: 100 MG, UNK 5 TIMES
     Route: 048
     Dates: start: 20150117
  7. VINCRISTINE SULFATE LIPOSOME [Suspect]
     Active Substance: VINCRISTINE SULFATE
     Indication: NON-HODGKIN^S LYMPHOMA
     Dosage: 3.62 MG, QOW Q2W
     Route: 042
     Dates: start: 20150112, end: 20150212
  8. DOXORUBICIN [Suspect]
     Active Substance: DOXORUBICIN
     Indication: NON-HODGKIN^S LYMPHOMA
     Dosage: 90 MG, QOW Q2W
     Route: 042
  9. PREDNISON [Concomitant]
     Active Substance: PREDNISONE
     Indication: NON-HODGKIN^S LYMPHOMA
     Dosage: 100 MG, QOW D1-5 Q2W
     Route: 048
  10. ALLOPURINOL. [Concomitant]
     Active Substance: ALLOPURINOL
     Indication: PROPHYLAXIS
     Dosage: 150 MG, BID
     Route: 048
     Dates: start: 20150117
  11. ACICLOVIR [Concomitant]
     Active Substance: ACYCLOVIR
     Indication: INFECTION
     Dosage: 400 MG, TID
     Route: 048
     Dates: start: 20150211

REACTIONS (4)
  - Malaise [Recovered/Resolved]
  - Neurotoxicity [None]
  - Weight decreased [Recovered/Resolved]
  - Gastrointestinal disorder [None]

NARRATIVE: CASE EVENT DATE: 20150311
